FAERS Safety Report 7740641-7 (Version None)
Quarter: 2011Q3

REPORT INFORMATION
  Report Type: 
  Country: None (occurrence: None)
  Receive Date: 20110909
  Receipt Date: 20110829
  Transmission Date: 20111222
  Serious: No
  Sender: FDA-Public Use
  Company Number: AU-JNJFOC-20110309141

PATIENT
  Sex: Female

DRUGS (2)
  1. DURAGESIC-100 [Suspect]
     Indication: SLEEP DISORDER
     Route: 062
  2. DURAGESIC-100 [Suspect]
     Indication: NEUROPATHY PERIPHERAL
     Route: 062

REACTIONS (10)
  - APPLICATION SITE ERYTHEMA [None]
  - DERMATITIS CONTACT [None]
  - HYPERHIDROSIS [None]
  - WRONG TECHNIQUE IN DRUG USAGE PROCESS [None]
  - OFF LABEL USE [None]
  - WEIGHT INCREASED [None]
  - PRURITUS [None]
  - PRODUCT QUALITY ISSUE [None]
  - DRUG ADMINISTERED AT INAPPROPRIATE SITE [None]
  - CONSTIPATION [None]
